FAERS Safety Report 7024046-2 (Version None)
Quarter: 2010Q4

REPORT INFORMATION
  Report Type: 
  Country: None (occurrence: None)
  Receive Date: 20101001
  Receipt Date: 20100927
  Transmission Date: 20110411
  Serious: Yes (Life-Threatening)
  Sender: FDA-Public Use
  Company Number: JP-ASTRAZENECA-2010SE43008

PATIENT
  Age: 71 Year
  Sex: Female
  Weight: 53 kg

DRUGS (12)
  1. TENORMIN [Suspect]
     Indication: ATRIAL FIBRILLATION
     Route: 048
     Dates: end: 20100701
  2. TENORMIN [Interacting]
     Route: 048
     Dates: start: 20100701, end: 20100829
  3. PRONON [Interacting]
     Indication: ATRIAL FIBRILLATION
     Route: 048
     Dates: end: 20100829
  4. ALISRYTHM [Interacting]
     Indication: ATRIAL FIBRILLATION
     Dosage: 50 MG 1 - 2 TIMES A DAY
     Route: 048
     Dates: end: 20100828
  5. AZELASTINE HCL [Interacting]
     Indication: HYPERTENSION
     Route: 048
     Dates: start: 20100401, end: 20100829
  6. KUBACRON [Concomitant]
     Indication: HYPERTENSION
     Route: 048
     Dates: end: 20100829
  7. OLMETEC [Concomitant]
     Indication: HYPERTENSION
     Route: 048
     Dates: start: 20100701, end: 20100829
  8. LIPITOR [Concomitant]
     Indication: DYSLIPIDAEMIA
     Route: 048
     Dates: end: 20100828
  9. PELEX [Concomitant]
     Indication: UPPER RESPIRATORY TRACT INFLAMMATION
     Route: 048
     Dates: start: 20100824, end: 20100829
  10. COUGHNOL [Concomitant]
     Indication: UPPER RESPIRATORY TRACT INFLAMMATION
     Route: 048
     Dates: start: 20100824, end: 20100829
  11. RESPLEN [Concomitant]
     Indication: UPPER RESPIRATORY TRACT INFLAMMATION
     Route: 048
     Dates: start: 20100824, end: 20100829
  12. KLARICID [Concomitant]
     Indication: UPPER RESPIRATORY TRACT INFLAMMATION
     Route: 048
     Dates: start: 20100824, end: 20100829

REACTIONS (6)
  - BRADYCARDIA [None]
  - CARDIAC ARREST [None]
  - CONTINUOUS HAEMODIAFILTRATION [None]
  - DRUG INTERACTION [None]
  - HAEMODIALYSIS [None]
  - SYNCOPE [None]
